FAERS Safety Report 13003584 (Version 2)
Quarter: 2016Q4

REPORT INFORMATION
  Report Type: Spontaneous
  Country: TR (occurrence: TR)
  Receive Date: 20161206
  Receipt Date: 20161219
  Transmission Date: 20170207
  Serious: Yes (Other)
  Sender: FDA-Public Use
  Company Number: TR-ABBVIE-16P-161-1802445-00

PATIENT
  Sex: Female

DRUGS (1)
  1. KLACID [Suspect]
     Active Substance: CLARITHROMYCIN
     Indication: PRODUCT USED FOR UNKNOWN INDICATION
     Route: 048

REACTIONS (3)
  - Dysgeusia [Unknown]
  - Drug hypersensitivity [Unknown]
  - Swollen tongue [Unknown]

NARRATIVE: CASE EVENT DATE: 20161128
